FAERS Safety Report 24677138 (Version 2)
Quarter: 2024Q4

REPORT INFORMATION
  Report Type: Spontaneous
  Country: US (occurrence: US)
  Receive Date: 20241129
  Receipt Date: 20241210
  Transmission Date: 20250114
  Serious: Yes (Other)
  Sender: ALKEM
  Company Number: None

PATIENT
  Age: 56 Year
  Sex: Male

DRUGS (5)
  1. TACROLIMUS [Suspect]
     Active Substance: TACROLIMUS
     Indication: Immunosuppression
     Dosage: UNK
     Route: 065
  2. TACROLIMUS [Suspect]
     Active Substance: TACROLIMUS
     Indication: Prophylaxis against transplant rejection
  3. MYCOPHENOLATE MOFETIL [Suspect]
     Active Substance: MYCOPHENOLATE MOFETIL
     Indication: Chronic graft versus host disease
     Dosage: 15 MILLIGRAM/KILOGRAM, TID (EVERY 8 HOUR)
     Route: 065
     Dates: end: 20190326
  4. MYCOPHENOLATE MOFETIL [Suspect]
     Active Substance: MYCOPHENOLATE MOFETIL
     Indication: Immunosuppressant drug therapy
  5. MESALAMINE [Concomitant]
     Active Substance: MESALAMINE
     Indication: Colitis ulcerative
     Dosage: UNK
     Route: 065

REACTIONS (12)
  - Myelodysplastic syndrome [Recovered/Resolved]
  - Acute myeloid leukaemia [Recovered/Resolved]
  - Enterobacter bacteraemia [Unknown]
  - Human herpesvirus 6 viraemia [Unknown]
  - Chronic graft versus host disease in skin [Unknown]
  - Chronic graft versus host disease in intestine [Unknown]
  - Chronic graft versus host disease in eye [Unknown]
  - Chronic graft versus host disease [Unknown]
  - Chronic graft versus host disease in lung [Unknown]
  - Respiratory syncytial virus infection [Unknown]
  - Upper respiratory tract infection [Unknown]
  - Coronavirus infection [Unknown]

NARRATIVE: CASE EVENT DATE: 20180101
